FAERS Safety Report 18314073 (Version 2)
Quarter: 2020Q4

REPORT INFORMATION
  Report Type: Spontaneous
  Country: ES (occurrence: ES)
  Receive Date: 20200925
  Receipt Date: 20201124
  Transmission Date: 20210113
  Serious: Yes (Other)
  Sender: FDA-Public Use
  Company Number: ES-ALEXION-A202013842

PATIENT
  Sex: Female

DRUGS (1)
  1. SOLIRIS [Suspect]
     Active Substance: ECULIZUMAB
     Indication: MYASTHENIA GRAVIS
     Dosage: UNK
     Route: 065
     Dates: start: 20200721

REACTIONS (1)
  - Myasthenic syndrome [Unknown]

NARRATIVE: CASE EVENT DATE: 20200804
